FAERS Safety Report 8791679 (Version 1)
Quarter: 2012Q4

REPORT INFORMATION
  Report Type: 
  Country: US (occurrence: US)
  Receive Date: 20120918
  Receipt Date: 20120918
  Transmission Date: 20130627
  Serious: Yes (Other)
  Sender: FDA-Public Use
  Company Number: US-PFIZER INC-2012226487

PATIENT
  Age: 11 Year
  Sex: Male
  Weight: 38.1 kg

DRUGS (1)
  1. GENOTROPIN [Suspect]
     Indication: GROWTH HORMONE DEFICIENCY
     Dosage: 1.4 mg, 1x/day
     Route: 058
     Dates: start: 20120906

REACTIONS (1)
  - Testicular pain [Not Recovered/Not Resolved]
